FAERS Safety Report 4940647-7 (Version None)
Quarter: 2006Q1

REPORT INFORMATION
  Report Type: 
  Country: None (occurrence: None)
  Receive Date: 20060206
  Receipt Date: 20050607
  Transmission Date: 20060701
  Serious: No
  Sender: FDA-Public Use
  Company Number: MEDI-0003475

PATIENT
  Age: 64 Year
  Sex: Male
  Weight: 120.6568 kg

DRUGS (2)
  1. ETHYOL [Suspect]
     Indication: NEOPLASM MALIGNANT
     Dosage: 500 MG, DAILY, SUBCUTANEOUS
     Route: 058
     Dates: end: 20050407
  2. CLARITIN [Concomitant]

REACTIONS (3)
  - MALAISE [None]
  - RASH PAPULAR [None]
  - SKIN INFECTION [None]
